FAERS Safety Report 11889147 (Version 1)
Quarter: 2016Q1

REPORT INFORMATION
  Report Type: Spontaneous
  Country: US (occurrence: None)
  Receive Date: 20160104
  Receipt Date: 20160104
  Transmission Date: 20160526
  Serious: Yes (Disabling)
  Sender: FDA-Public Use
  Company Number: None

PATIENT
  Age: 52 Year
  Sex: Male
  Weight: 81.65 kg

DRUGS (5)
  1. GABAPENTIN. [Concomitant]
     Active Substance: GABAPENTIN
  2. GNC MEN^S WHOLE FOOD VITAMIN [Concomitant]
  3. CIPROFLOXACIN. [Suspect]
     Active Substance: CIPROFLOXACIN
     Indication: EPIDIDYMITIS
     Dosage: 1 PILL TWICE DAILY
     Route: 048
     Dates: start: 20151222, end: 20151224
  4. NAPROXEN. [Concomitant]
     Active Substance: NAPROXEN
  5. VITAMIN C [Concomitant]
     Active Substance: ASCORBIC ACID

REACTIONS (3)
  - Neuropathy peripheral [None]
  - Diarrhoea [None]
  - Condition aggravated [None]

NARRATIVE: CASE EVENT DATE: 20151222
